FAERS Safety Report 10017137 (Version 2)
Quarter: 2014Q1

REPORT INFORMATION
  Report Type: Spontaneous
  Country: BR (occurrence: BR)
  Receive Date: 20140318
  Receipt Date: 20140324
  Transmission Date: 20141002
  Serious: Yes (Other)
  Sender: FDA-Public Use
  Company Number: BR-AMGEN-BRASP2014018520

PATIENT
  Age: 46 Year
  Sex: Female
  Weight: 52 kg

DRUGS (5)
  1. ENBREL [Suspect]
     Indication: RHEUMATOID ARTHRITIS
     Dosage: 50 MG, ONCE WEEKLY
     Route: 058
     Dates: start: 201002
  2. ENBREL [Suspect]
     Dosage: 50 MG, QWK
     Route: 058
  3. PREDNISONE [Concomitant]
     Dosage: UNK, AS NEEDED
  4. METHOTREXATE [Concomitant]
     Dosage: UNK
  5. IBUPROFEN [Concomitant]
     Dosage: UNK

REACTIONS (5)
  - Arthropathy [Unknown]
  - Sciatica [Unknown]
  - Nodule [Unknown]
  - Arthralgia [Unknown]
  - Drug ineffective [Unknown]
